FAERS Safety Report 26034597 (Version 1)
Quarter: 2025Q4

REPORT INFORMATION
  Report Type: Spontaneous
  Country: EU (occurrence: EU)
  Receive Date: 20251112
  Receipt Date: 20251112
  Transmission Date: 20260118
  Serious: Yes (Other)
  Sender: CHEPLAPHARM
  Company Number: None

PATIENT
  Age: 41 Year
  Sex: Female
  Weight: 77 kg

DRUGS (12)
  1. OLANZAPINE PAMOATE [Suspect]
     Active Substance: OLANZAPINE PAMOATE
     Indication: Schizophrenia
     Dosage: (OLANZAPINE LEVELS AT 70 NG/ML)
     Route: 030
     Dates: start: 20250625
  2. OLANZAPINE PAMOATE [Suspect]
     Active Substance: OLANZAPINE PAMOATE
     Indication: Schizophrenia
     Dosage: SEVERAL YEARS?DAILY DOSE: 30 MILLIGRAM
     Route: 048
     Dates: start: 20250625
  3. OLANZAPINE PAMOATE [Suspect]
     Active Substance: OLANZAPINE PAMOATE
     Indication: Schizophrenia
     Dosage: SECOND INJECTION
     Route: 030
     Dates: start: 20250711
  4. OLANZAPINE PAMOATE [Suspect]
     Active Substance: OLANZAPINE PAMOATE
     Indication: Schizophrenia
     Dosage: THIRD ADMINISTRATION OF ZYPADHERA LP
     Route: 030
     Dates: start: 20250725
  5. OLANZAPINE PAMOATE [Suspect]
     Active Substance: OLANZAPINE PAMOATE
     Indication: Schizophrenia
     Dosage: INCREASE ZYPADHERA LP TO 405MG/14 DAYS
     Route: 030
     Dates: start: 20250808
  6. OLANZAPINE PAMOATE [Suspect]
     Active Substance: OLANZAPINE PAMOATE
     Indication: Schizophrenia
     Dosage: DECREASE IN OLANZAPINE CONCENTRATION
     Route: 030
     Dates: start: 20250822
  7. NICORETTE [Concomitant]
     Active Substance: NICOTINE
  8. PANTOPRAZOLE [Concomitant]
     Active Substance: PANTOPRAZOLE
  9. DESOGESTREL [Concomitant]
     Active Substance: DESOGESTREL
  10. MINERAL OIL [Concomitant]
     Active Substance: MINERAL OIL
  11. ALVERINE [Concomitant]
     Active Substance: ALVERINE
  12. SIMETHICONE (DIMETHICONE) [Concomitant]
     Active Substance: DIMETHICONE

REACTIONS (6)
  - Psychiatric decompensation [Recovering/Resolving]
  - Drug level changed [Recovered/Resolved]
  - Underdose [Recovered/Resolved]
  - Weight increased [Not Recovered/Not Resolved]
  - Hyperprolactinaemia [Not Recovered/Not Resolved]
  - Diabetes mellitus [Not Recovered/Not Resolved]

NARRATIVE: CASE EVENT DATE: 20250616
